FAERS Safety Report 6655043-4 (Version None)
Quarter: 2010Q1

REPORT INFORMATION
  Report Type: 
  Country: None (occurrence: None)
  Receive Date: 20100329
  Receipt Date: 20100313
  Transmission Date: 20100710
  Serious: Yes (Death, Hospitalization)
  Sender: FDA-Public Use
  Company Number: NSADSS2002036995

PATIENT
  Age: 57 Year
  Sex: Male

DRUGS (1)
  1. LEVOFLOXACIN [Suspect]
     Indication: BRONCHIAL DISORDER
     Route: 048
     Dates: start: 20021005

REACTIONS (4)
  - CARDIAC FAILURE [None]
  - HYPERHIDROSIS [None]
  - LOSS OF CONSCIOUSNESS [None]
  - RESPIRATORY FAILURE [None]
